FAERS Safety Report 12524235 (Version 2)
Quarter: 2016Q3

REPORT INFORMATION
  Report Type: Spontaneous
  Country: DK (occurrence: DK)
  Receive Date: 20160704
  Receipt Date: 20160906
  Transmission Date: 20161109
  Serious: Yes (Hospitalization)
  Sender: FDA-Public Use
  Company Number: DK-ACCORD-042012

PATIENT
  Age: 80 Year
  Sex: Male

DRUGS (18)
  1. NIFEDIPIN ALTERNOVA [Concomitant]
     Indication: HYPERTENSION
  2. ALDACTONE [Concomitant]
     Active Substance: SPIRONOLACTONE
     Indication: HYPERTENSION
  3. PROPRANOLOL DAK [Concomitant]
     Indication: HYPERTENSION
  4. BENDAMUSTINE ACCORD [Suspect]
     Active Substance: BENDAMUSTINE
     Indication: LYMPHOMA
     Dosage: 140 MG DGL FOR 2 DAYS REPEATED 4 TIMES
     Route: 042
     Dates: start: 20150316, end: 201506
  5. LEVACT [Suspect]
     Active Substance: BENDAMUSTINE HYDROCHLORIDE
     Indication: LYMPHOMA
     Route: 042
     Dates: start: 20150112, end: 20150209
  6. SULFAMETHOXAZOLE/TRIMETHOPRIM [Concomitant]
     Indication: INFECTION PROPHYLAXIS
  7. HJERTEMAGNYL [Concomitant]
     Active Substance: ASPIRIN\MAGNESIUM OXIDE
     Indication: THROMBOSIS PROPHYLAXIS
  8. SYMBICORT [Concomitant]
     Active Substance: BUDESONIDE\FORMOTEROL FUMARATE DIHYDRATE
     Indication: CHRONIC OBSTRUCTIVE PULMONARY DISEASE
  9. NATRIUMKLORID FRESENIUS KABI [Concomitant]
     Dosage: STRENGTH : 9 MG/ML
  10. EMPERAL [Concomitant]
     Active Substance: METOCLOPRAMIDE HYDROCHLORIDE
     Indication: NAUSEA
  11. KININ DAK [Concomitant]
     Indication: MUSCLE SPASMS
  12. SPIRIVA [Concomitant]
     Active Substance: TIOTROPIUM BROMIDE MONOHYDRATE
     Indication: CHRONIC OBSTRUCTIVE PULMONARY DISEASE
  13. ALLOPURINOL DAK [Concomitant]
     Indication: GOUT
  14. CENTYL MED KALIUMKLORID [Concomitant]
     Active Substance: BENDROFLUMETHIAZIDE\POTASSIUM CHLORIDE
     Indication: HYPERTENSION
  15. KODAMID DAK [Concomitant]
     Indication: PAIN
  16. PINEX [Concomitant]
     Active Substance: ACETAMINOPHEN
     Indication: PAIN
  17. KODEIN DAK [Concomitant]
     Active Substance: CODEINE PHOSPHATE
     Indication: COUGH
  18. MOVICOL [Concomitant]
     Active Substance: POLYETHYLENE GLYCOL 3350\POTASSIUM CHLORIDE\SODIUM BICARBONATE\SODIUM CHLORIDE
     Indication: CONSTIPATION

REACTIONS (5)
  - Interstitial lung disease [Not Recovered/Not Resolved]
  - Lung disorder [Unknown]
  - Emphysema [Not Recovered/Not Resolved]
  - Bronchiectasis [Not Recovered/Not Resolved]
  - Pulmonary fibrosis [Not Recovered/Not Resolved]

NARRATIVE: CASE EVENT DATE: 201605
